FAERS Safety Report 19036354 (Version 1)
Quarter: 2021Q1

REPORT INFORMATION
  Report Type: Spontaneous
  Country: IT (occurrence: IT)
  Receive Date: 20210322
  Receipt Date: 20210322
  Transmission Date: 20210420
  Serious: Yes (Other)
  Sender: FDA-Public Use
  Company Number: IT-AUROBINDO-AUR-APL-2021-011113

PATIENT
  Age: 76 Year
  Sex: Female
  Weight: 60 kg

DRUGS (3)
  1. VEPESID [Suspect]
     Active Substance: ETOPOSIDE
     Indication: NEUROENDOCRINE CARCINOMA
     Dosage: 250 MILLIGRAM 1 CYCLE
     Route: 048
     Dates: start: 20201230
  2. CARBOPLATIN. [Suspect]
     Active Substance: CARBOPLATIN
     Indication: NEUROENDOCRINE CARCINOMA
     Dosage: 295 MILLIGRAM 1 CYCLE
     Route: 042
     Dates: start: 20201230
  3. ETOPOSIDE. [Suspect]
     Active Substance: ETOPOSIDE
     Indication: NEUROENDOCRINE CARCINOMA
     Dosage: 165 MILLIGRAM 1 CYCLE
     Route: 042
     Dates: start: 20210130

REACTIONS (5)
  - Anaemia [Unknown]
  - Asthenia [Unknown]
  - Diarrhoea [Unknown]
  - Aphthous ulcer [Unknown]
  - Insomnia [Unknown]

NARRATIVE: CASE EVENT DATE: 20210303
